FAERS Safety Report 14859858 (Version 1)
Quarter: 2018Q2

REPORT INFORMATION
  Report Type: Report from Study
  Country: US (occurrence: US)
  Receive Date: 20180508
  Receipt Date: 20180508
  Transmission Date: 20180711
  Serious: Yes (Hospitalization, Other)
  Sender: FDA-Public Use
  Company Number: US-HORIZON-KRY-0125-2018

PATIENT
  Age: 67 Year
  Sex: Male

DRUGS (1)
  1. KRYSTEXXA [Suspect]
     Active Substance: PEGLOTICASE
     Indication: PRODUCT USED FOR UNKNOWN INDICATION
     Dosage: 8 MG/ML

REACTIONS (4)
  - Urticaria [Unknown]
  - Dyspnoea [Unknown]
  - Loss of consciousness [Unknown]
  - Wheezing [Unknown]

NARRATIVE: CASE EVENT DATE: 20080418
